FAERS Safety Report 11009121 (Version 1)
Quarter: 2015Q2

REPORT INFORMATION
  Report Type: Spontaneous
  Country: US (occurrence: None)
  Receive Date: 20150409
  Receipt Date: 20150409
  Transmission Date: 20150821
  Serious: Yes (Other)
  Sender: FDA-Public Use
  Company Number: None

PATIENT
  Age: 37 Year
  Sex: Male

DRUGS (1)
  1. HUMIRA [Suspect]
     Active Substance: ADALIMUMAB
     Indication: PSORIASIS
     Dosage: ABOUT 1 YEAR, FILLED ELSEWHERE AND BEEN , STRENGTH: 40 MG, FREQUENCY:  1 14 DAY, ROUTE SUBCUTANEOUS 057
     Route: 058

REACTIONS (3)
  - Urine analysis abnormal [None]
  - Protein urine present [None]
  - Drug effect decreased [None]

NARRATIVE: CASE EVENT DATE: 20150407
